FAERS Safety Report 25637196 (Version 1)
Quarter: 2025Q3

REPORT INFORMATION
  Report Type: Spontaneous
  Country: US (occurrence: US)
  Receive Date: 20250804
  Receipt Date: 20250804
  Transmission Date: 20251021
  Serious: Yes (Other)
  Sender: CATALYST PHARMA
  Company Number: US-CATALYST PHARMACEUTICALS-US-CATA-25-01098

PATIENT
  Age: 18 Year
  Sex: Male
  Weight: 106.12 kg

DRUGS (13)
  1. AGAMREE [Suspect]
     Active Substance: VAMOROLONE
     Indication: Duchenne muscular dystrophy
     Dosage: 5 ML ONCE DAILY
     Route: 048
     Dates: start: 20240807, end: 202408
  2. AGAMREE [Suspect]
     Active Substance: VAMOROLONE
     Dosage: 2.5 ML ONCE DAILY
     Route: 048
     Dates: start: 20240823
  3. CARVEDILOL [Concomitant]
     Active Substance: CARVEDILOL
     Indication: Cardiomyopathy
     Dosage: 6.25 MG TWICE A DAY
     Route: 065
  4. EPLERENONE [Concomitant]
     Active Substance: EPLERENONE
     Indication: Cardiomyopathy
     Dosage: 25 MG DAILY
     Route: 065
  5. LEXAPRO [Concomitant]
     Active Substance: ESCITALOPRAM OXALATE
     Indication: Autism spectrum disorder
     Dosage: 25 MG DAILY
     Route: 065
  6. LEXAPRO [Concomitant]
     Active Substance: ESCITALOPRAM OXALATE
     Indication: Affective disorder
  7. LANTUS SOLOSTAR [Concomitant]
     Active Substance: INSULIN GLARGINE
     Indication: Diabetes mellitus
     Dosage: 10 UNITS EVERY NIGHT AT BEDTIME
     Route: 065
  8. LISINOPRIL [Concomitant]
     Active Substance: LISINOPRIL
     Indication: Cardiomyopathy
     Dosage: 10 MG DAILY
     Route: 065
  9. METFORMIN [Concomitant]
     Active Substance: METFORMIN HYDROCHLORIDE
     Indication: Diabetes mellitus
     Dosage: 1000 MG TWICE DAILY
     Route: 065
  10. NOVOLIN 70/30 [Concomitant]
     Active Substance: INSULIN HUMAN
     Indication: Diabetes mellitus
     Route: 065
  11. SEROQUEL [Concomitant]
     Active Substance: QUETIAPINE FUMARATE
     Indication: Autism spectrum disorder
     Dosage: 100 MG DAILY
     Route: 065
  12. SEROQUEL [Concomitant]
     Active Substance: QUETIAPINE FUMARATE
     Indication: Affective disorder
  13. TRAZODONE [Concomitant]
     Active Substance: TRAZODONE HYDROCHLORIDE
     Indication: Insomnia
     Dosage: 150 MG AT BEDTIME
     Route: 065

REACTIONS (1)
  - Cardiac dysfunction [Not Recovered/Not Resolved]

NARRATIVE: CASE EVENT DATE: 20250701
